FAERS Safety Report 14670384 (Version 1)
Quarter: 2018Q1

REPORT INFORMATION
  Report Type: Spontaneous
  Country: PK (occurrence: PK)
  Receive Date: 20180322
  Receipt Date: 20180322
  Transmission Date: 20180509
  Serious: Yes (Hospitalization)
  Sender: FDA-Public Use
  Company Number: PK-PFIZER INC-2018116414

PATIENT
  Age: 40 Year
  Sex: Female
  Weight: 60 kg

DRUGS (10)
  1. CLOFAZIMINE [Suspect]
     Active Substance: CLOFAZIMINE
     Indication: TUBERCULOSIS
     Dosage: 100 MG, 1X/DAY
     Dates: start: 20161213, end: 20180116
  2. AMOXICILLIN/CLAVULANIC ACID [Suspect]
     Active Substance: AMOXICILLIN\CLAVULANIC ACID
     Indication: TUBERCULOSIS
     Dosage: 2600 MG, 1X/DAY
     Dates: start: 20161213
  3. BEDAQUILINE [Suspect]
     Active Substance: BEDAQUILINE
     Indication: TUBERCULOSIS
     Dosage: 400 MG, CYCLIC (7 DAYS A WEEK FOR 2 WEEKS)
     Route: 048
     Dates: start: 20161213, end: 201612
  4. BEDAQUILINE [Suspect]
     Active Substance: BEDAQUILINE
     Dosage: 200 MG, 2X/DAY
     Route: 048
     Dates: start: 201612, end: 20180116
  5. DELAMANID [Suspect]
     Active Substance: DELAMANID
     Indication: TUBERCULOSIS
     Dosage: 200 MG, 1X/DAY
     Dates: start: 20170103, end: 20180116
  6. LINEZOLID. [Suspect]
     Active Substance: LINEZOLID
     Indication: TUBERCULOSIS
     Dosage: 600 MG, 1X/DAY
     Route: 048
     Dates: start: 20161213, end: 20180116
  7. CAPREOMYCIN [Suspect]
     Active Substance: CAPREOMYCIN
     Indication: TUBERCULOSIS
     Dosage: 1000 MG, 1X/DAY
     Dates: start: 20161213, end: 20170314
  8. VITAMIN B6 [Concomitant]
     Active Substance: PYRIDOXINE HYDROCHLORIDE
     Dosage: UNK
     Dates: start: 20161213
  9. CAPREOMYCIN [Suspect]
     Active Substance: CAPREOMYCIN
     Dosage: 1000 MG, 1X/DAY
     Dates: start: 20170324, end: 20171023
  10. CAPREOMYCIN [Suspect]
     Active Substance: CAPREOMYCIN
     Dosage: 1000 MG, 1X/DAY
     Dates: end: 20180116

REACTIONS (4)
  - Dyspnoea [Recovered/Resolved]
  - Hypertension [Unknown]
  - Cough [Unknown]
  - Incorrect drug administration duration [Unknown]

NARRATIVE: CASE EVENT DATE: 20180115
